FAERS Safety Report 11858719 (Version 1)
Quarter: 2015Q4

REPORT INFORMATION
  Report Type: Not Available
  Country: FR (occurrence: FR)
  Receive Date: 20151222
  Receipt Date: 20151222
  Transmission Date: 20160305
  Serious: Yes (Hospitalization)
  Sender: FDA-Public Use
  Company Number: FR-BEH-2015056895

PATIENT
  Age: 30 Year
  Sex: Female

DRUGS (7)
  1. CELOCURINE [Suspect]
     Active Substance: SUCCINYLCHOLINE CHLORIDE
     Indication: ANAESTHESIA
     Dosage: 100 MG, 1 IN 1 SINGLE DOSE
     Route: 042
     Dates: start: 20150604, end: 20150604
  2. ASPEGIC NOURRISSONS [Concomitant]
     Active Substance: ASPIRIN LYSINE
     Indication: ESSENTIAL THROMBOCYTHAEMIA
     Dosage: POWDER FOR ORAL SOLUTION IN A DOSE SACHET
  3. SUFENTANIL MERCK [Suspect]
     Active Substance: SUFENTANIL
     Indication: ANAESTHESIA
     Dosage: 20 G, 1 IN 1 SINGLE DOSE
     Route: 042
     Dates: start: 20150604, end: 20150604
  4. ESMERON [Suspect]
     Active Substance: ROCURONIUM BROMIDE
     Indication: ANAESTHESIA
     Dosage: 30 MG, 1 IN 1 SINGLE DOSE
     Route: 042
     Dates: start: 20150604, end: 20150604
  5. CEFAMANDOLE PANPHARMA [Suspect]
     Active Substance: CEFAMANDOLE
     Indication: ANTIBIOTIC PROPHYLAXIS
     Dosage: 1.5 G, 1 IN 1 SINGLE DOSE
     Route: 042
     Dates: start: 20150604, end: 20150604
  6. RHOPHYLAC [Suspect]
     Active Substance: HUMAN RHO(D) IMMUNE GLOBULIN
     Indication: ALLOIMMUNISATION
     Dosage: 200 MICROGRAMS/2 ML, SOLUTION FOR INJECTION IN A PRE-FILLED SYRINGE
     Route: 042
     Dates: start: 20150603, end: 20150603
  7. SODIUM THIOPENTAL [Suspect]
     Active Substance: THIOPENTAL SODIUM
     Indication: ANAESTHESIA
     Dosage: 500 MG, 1 IN 1 SINGLE DOSE
     Route: 042
     Dates: start: 20150604, end: 20150604

REACTIONS (7)
  - Hypotension [Recovered/Resolved]
  - Hypocapnia [Recovered/Resolved]
  - Maternal exposure during delivery [None]
  - Pulmonary embolism [Recovered/Resolved]
  - Oxygen saturation decreased [Recovered/Resolved]
  - Tachycardia [Recovered/Resolved]
  - Retroplacental haematoma [Recovered/Resolved]

NARRATIVE: CASE EVENT DATE: 20150604
